FAERS Safety Report 7928629-4 (Version None)
Quarter: 2011Q4

REPORT INFORMATION
  Report Type: 
  Country: None (occurrence: None)
  Receive Date: 20111118
  Receipt Date: 20111109
  Transmission Date: 20120403
  Serious: Yes (Hospitalization)
  Sender: FDA-Public Use
  Company Number: DE-MILLENNIUM PHARMACEUTICALS, INC.-2011-05675

PATIENT

DRUGS (8)
  1. COTRIM FORTE EU RHO [Concomitant]
     Dosage: UNK
     Dates: start: 20111025, end: 20111104
  2. ZOMETA [Concomitant]
     Indication: MULTIPLE MYELOMA
     Dosage: 4 MG, UNK
     Dates: start: 20111028, end: 20111028
  3. ADRIAMYCIN PFS [Concomitant]
     Indication: MULTIPLE MYELOMA
     Dosage: 9 MG/M2, UNK
     Dates: start: 20111025, end: 20111028
  4. ENOXAPARIN SODIUM [Concomitant]
     Dosage: UNK
     Dates: start: 20111025, end: 20111104
  5. DEXAMETHASONE [Concomitant]
     Indication: MULTIPLE MYELOMA
     Dosage: 20 MG, UNK
     Dates: start: 20111025, end: 20111104
  6. ACYCLOVIR [Concomitant]
     Dosage: UNK
     Dates: start: 20111025, end: 20111104
  7. VELCADE [Suspect]
     Indication: MULTIPLE MYELOMA
     Dosage: 1.3 MG/M2, CYCLIC
     Route: 042
     Dates: start: 20111025, end: 20111028
  8. HYDROMORPHONE HCL [Concomitant]
     Dosage: 12 MG, UNK
     Dates: start: 20111025, end: 20111104

REACTIONS (4)
  - HICCUPS [None]
  - GENERAL PHYSICAL HEALTH DETERIORATION [None]
  - PAIN [None]
  - HYPOCALCAEMIA [None]
